FAERS Safety Report 7637829-2 (Version None)
Quarter: 2011Q3

REPORT INFORMATION
  Report Type: 
  Country: None (occurrence: None)
  Receive Date: 20110718
  Receipt Date: 20110703
  Transmission Date: 20111222
  Serious: Yes (Other)
  Sender: FDA-Public Use
  Company Number: 003-052

PATIENT
  Age: 68 Year
  Sex: Male

DRUGS (2)
  1. CROFAB [Suspect]
     Indication: SNAKE BITE
     Dosage: 2 VIALS, LOADING DOSE
     Dates: start: 20110620
  2. CROFAB [Suspect]

REACTIONS (9)
  - PLATELET COUNT DECREASED [None]
  - PAIN [None]
  - HYPERHIDROSIS [None]
  - BLOOD UREA INCREASED [None]
  - HAEMATOCRIT INCREASED [None]
  - ABDOMINAL PAIN [None]
  - SWELLING [None]
  - HYPOTENSION [None]
  - BRADYCARDIA [None]
